FAERS Safety Report 14628630 (Version 1)
Quarter: 2018Q1

REPORT INFORMATION
  Report Type: Spontaneous
  Country: AU (occurrence: AU)
  Receive Date: 20180313
  Receipt Date: 20180313
  Transmission Date: 20180509
  Serious: Yes (Hospitalization, Other)
  Sender: FDA-Public Use
  Company Number: AU-ABBVIE-18K-008-2282285-00

PATIENT
  Age: 21 Year
  Sex: Female

DRUGS (2)
  1. HUMIRA [Suspect]
     Active Substance: ADALIMUMAB
     Indication: CROHN^S DISEASE
     Route: 058
  2. INFLIXIMAB [Suspect]
     Active Substance: INFLIXIMAB
     Indication: CROHN^S DISEASE
     Route: 065

REACTIONS (10)
  - Arthritis [Unknown]
  - Rash [Unknown]
  - Anaphylactic reaction [Unknown]
  - Crohn^s disease [Unknown]
  - Throat tightness [Unknown]
  - Joint swelling [Unknown]
  - Adverse drug reaction [Unknown]
  - Weight abnormal [Unknown]
  - Gait inability [Unknown]
  - Swelling face [Unknown]
